FAERS Safety Report 11791280 (Version 2)
Quarter: 2016Q1

REPORT INFORMATION
  Report Type: Spontaneous
  Country: US (occurrence: US)
  Receive Date: 20151201
  Receipt Date: 20160209
  Transmission Date: 20160525
  Serious: No
  Sender: FDA-Public Use
  Company Number: US-GLAXOSMITHKLINE-US2015GSK152712

PATIENT
  Age: 48 Year
  Sex: Male
  Weight: 79.37 kg

DRUGS (1)
  1. BREO ELLIPTA [Suspect]
     Active Substance: FLUTICASONE FUROATE\VILANTEROL TRIFENATATE
     Indication: ASTHMA
     Dosage: 1 PUFF(S), QD
     Route: 055
     Dates: start: 201509

REACTIONS (2)
  - Weight increased [Unknown]
  - Body mass index increased [Unknown]

NARRATIVE: CASE EVENT DATE: 201509
